FAERS Safety Report 14186125 (Version 2)
Quarter: 2017Q4

REPORT INFORMATION
  Report Type: Report from Study
  Country: US (occurrence: US)
  Receive Date: 20171114
  Receipt Date: 20171122
  Transmission Date: 20180321
  Serious: No
  Sender: FDA-Public Use
  Company Number: US-AMGEN-USASL2017170198

PATIENT
  Age: 66 Year
  Sex: Female

DRUGS (1)
  1. ENBREL [Suspect]
     Active Substance: ETANERCEPT
     Indication: PRODUCT USED FOR UNKNOWN INDICATION
     Dosage: UNK UNK, QWK
     Route: 065

REACTIONS (8)
  - Injection site urticaria [Unknown]
  - Injection site inflammation [Unknown]
  - Injection site haemorrhage [Unknown]
  - Injection site pruritus [Unknown]
  - Dry skin [Unknown]
  - Formication [Unknown]
  - Injection site bruising [Unknown]
  - Injection site discomfort [Unknown]

NARRATIVE: CASE EVENT DATE: 201711
